FAERS Safety Report 13007600 (Version 2)
Quarter: 2016Q4

REPORT INFORMATION
  Report Type: Report from Study
  Country: FR (occurrence: FR)
  Receive Date: 20161207
  Receipt Date: 20161212
  Transmission Date: 20170207
  Serious: Yes (Other)
  Sender: FDA-Public Use
  Company Number: FR-GILEAD-2016-0247270

PATIENT
  Age: 60 Year
  Sex: Male
  Weight: 70 kg

DRUGS (16)
  1. LAMIVUDINE. [Concomitant]
     Active Substance: LAMIVUDINE
     Indication: HIV INFECTION
     Dosage: UNK UNKNOWN, UNK
     Route: 065
     Dates: start: 20021215
  2. HEMIGOXINE [Concomitant]
     Active Substance: DIGOXIN
     Indication: ARRHYTHMIA
     Dosage: UNK UNKNOWN, UNK
     Route: 065
  3. HEMIGOXINE [Concomitant]
     Active Substance: DIGOXIN
     Indication: ATRIAL FIBRILLATION
  4. EMTRIVA [Suspect]
     Active Substance: EMTRICITABINE
     Indication: HIV INFECTION
     Dosage: UNK UNKNOWN, UNK
     Route: 065
     Dates: start: 2011
  5. EDURANT [Concomitant]
     Active Substance: RILPIVIRINE HYDROCHLORIDE
     Indication: HIV TEST POSITIVE
     Dosage: UNK UNKNOWN, UNK
     Route: 065
  6. TIVICAY [Concomitant]
     Active Substance: DOLUTEGRAVIR SODIUM
     Indication: HIV TEST POSITIVE
     Dosage: UNK UNKNOWN, UNK
     Route: 065
  7. TRIATEC                            /00885601/ [Concomitant]
     Active Substance: RAMIPRIL
     Indication: ATRIAL FIBRILLATION
  8. CARDENSIEL [Concomitant]
     Active Substance: BISOPROLOL FUMARATE
     Indication: ATRIAL FIBRILLATION
  9. XARELTO [Concomitant]
     Active Substance: RIVAROXABAN
     Indication: ATRIAL FIBRILLATION
  10. TENOFOVIR DISOPROXIL FUMARATE. [Suspect]
     Active Substance: TENOFOVIR DISOPROXIL FUMARATE
     Indication: HIV INFECTION
     Dosage: 66 MG, QD
     Route: 065
     Dates: start: 20021215
  11. CARDENSIEL [Concomitant]
     Active Substance: BISOPROLOL FUMARATE
     Indication: ARRHYTHMIA
     Dosage: UNK UNKNOWN, UNK
     Route: 065
  12. XALACOM [Concomitant]
     Active Substance: LATANOPROST\TIMOLOL MALEATE
     Indication: GLAUCOMA
     Dosage: UNK UNKNOWN, UNK
     Route: 065
  13. ALPHAGAN P [Concomitant]
     Active Substance: BRIMONIDINE TARTRATE
     Indication: GLAUCOMA
     Dosage: UNK UNKNOWN, UNK
     Route: 065
  14. XARELTO [Concomitant]
     Active Substance: RIVAROXABAN
     Indication: ARRHYTHMIA
     Dosage: UNK UNKNOWN, UNK
     Route: 065
  15. TENOFOVIR DISOPROXIL FUMARATE. [Suspect]
     Active Substance: TENOFOVIR DISOPROXIL FUMARATE
     Dosage: 65 MG, QD
     Route: 065
     Dates: start: 2011
  16. TRIATEC                            /00885601/ [Concomitant]
     Active Substance: RAMIPRIL
     Indication: ARRHYTHMIA
     Dosage: UNK UNKNOWN, UNK
     Route: 065

REACTIONS (5)
  - Hepatitis B DNA assay positive [Unknown]
  - Renal failure [Unknown]
  - Hepatic cancer [Unknown]
  - Virologic failure [Unknown]
  - Overdose [Unknown]
